FAERS Safety Report 12075173 (Version 1)
Quarter: 2016Q1

REPORT INFORMATION
  Report Type: Spontaneous
  Country: US (occurrence: US)
  Receive Date: 20160212
  Receipt Date: 20160212
  Transmission Date: 20160526
  Serious: No
  Sender: FDA-Public Use
  Company Number: US-GILEAD-2016-0197768

PATIENT
  Sex: Male

DRUGS (2)
  1. HARVONI [Suspect]
     Active Substance: LEDIPASVIR\SOFOSBUVIR
     Indication: HEPATITIS C
  2. ROBITUSSIN CF                      /00497901/ [Concomitant]
     Active Substance: DEXTROMETHORPHAN\GUAIFENESIN\PHENYLPROPANOLAMINE HYDROCHLORIDE
     Indication: COUGH

REACTIONS (1)
  - Cough [Not Recovered/Not Resolved]
